FAERS Safety Report 8719488 (Version 2)
Quarter: 2012Q4

REPORT INFORMATION
  Report Type: 
  Country: DE (occurrence: DE)
  Receive Date: 20120813
  Receipt Date: 20121218
  Transmission Date: 20130627
  Serious: No
  Sender: FDA-Public Use
  Company Number: DE-ELI_LILLY_AND_COMPANY-DE201207007145

PATIENT
  Age: 53 Year
  Sex: Male

DRUGS (2)
  1. ZYPREXA [Suspect]
     Indication: BIPOLAR DISORDER
     Dosage: 10 mg, each evening
     Dates: start: 20070521
  2. ZYPREXA [Suspect]
     Dosage: 5 mg, each evening
     Dates: start: 200804

REACTIONS (3)
  - Diabetes mellitus [Unknown]
  - Weight increased [Recovering/Resolving]
  - Erectile dysfunction [Unknown]
